FAERS Safety Report 4683816-6 (Version None)
Quarter: 2005Q2

REPORT INFORMATION
  Report Type: 
  Country: None (occurrence: None)
  Receive Date: 20050607
  Receipt Date: 20050531
  Transmission Date: 20051028
  Serious: Yes (Death)
  Sender: FDA-Public Use
  Company Number: US-JNJFOC-20050600935

PATIENT
  Age: 71 Year
  Sex: Female

DRUGS (6)
  1. RISPERDAL [Suspect]
     Indication: DEMENTIA
     Route: 049
  2. LISINOPRIL [Concomitant]
     Indication: BLOOD PRESSURE
  3. POTASSIUM SUPPLEMENT [Concomitant]
     Route: 049
  4. ATIVAN [Concomitant]
     Indication: AGITATION
     Route: 049
  5. NEURONTIN [Concomitant]
     Route: 049
  6. GLYNASE [Concomitant]
     Route: 049

REACTIONS (1)
  - DEATH [None]
